FAERS Safety Report 8395503-1 (Version None)
Quarter: 2012Q2

REPORT INFORMATION
  Report Type: 
  Country: None (occurrence: None)
  Receive Date: 20120530
  Receipt Date: 20110516
  Transmission Date: 20120825
  Serious: No
  Sender: FDA-Public Use
  Company Number: US-GLAXOSMITHKLINE-A0927522A

PATIENT
  Age: 62 Year
  Sex: Male

DRUGS (8)
  1. ASPIRIN [Concomitant]
  2. VENTOLIN [Suspect]
     Indication: BRONCHITIS
     Dosage: 2PUFF SIX TIMES PER DAY
     Route: 055
     Dates: start: 20110513
  3. VITAMIN TAB [Concomitant]
  4. DIABETES MEDICATION [Concomitant]
  5. CHERATUSSIN [Concomitant]
  6. LEVAQUIN [Concomitant]
  7. BLOOD PRESSURE MEDICATION [Concomitant]
  8. ARTHRITIS MEDICATION [Concomitant]

REACTIONS (3)
  - INSOMNIA [None]
  - DRUG INEFFECTIVE [None]
  - DRUG ADMINISTRATION ERROR [None]
